FAERS Safety Report 20667117 (Version 1)
Quarter: 2022Q2

REPORT INFORMATION
  Report Type: Spontaneous
  Country: FR (occurrence: FR)
  Receive Date: 20220404
  Receipt Date: 20220404
  Transmission Date: 20220721
  Serious: Yes (Hospitalization)
  Sender: FDA-Public Use
  Company Number: FR-AFSSAPS-RN20220860

PATIENT
  Age: 49 Year
  Sex: Male
  Weight: 115 kg

DRUGS (2)
  1. AMOXICILLIN [Suspect]
     Active Substance: AMOXICILLIN
     Indication: Product used for unknown indication
     Dosage: 1 GRAM, ONCE A DAY
     Route: 048
     Dates: start: 20211126, end: 20211126
  2. PREDNISOLONE [Suspect]
     Active Substance: PREDNISOLONE
     Indication: Product used for unknown indication
     Dosage: 80 MILLIGRAM, ONCE A DAY
     Route: 048
     Dates: start: 20211126, end: 20211126

REACTIONS (3)
  - Erythema [Recovered/Resolved]
  - Face oedema [Recovered/Resolved]
  - Skin oedema [Recovered/Resolved]

NARRATIVE: CASE EVENT DATE: 20211126
